FAERS Safety Report 6915401-7 (Version None)
Quarter: 2010Q3

REPORT INFORMATION
  Report Type: 
  Country: None (occurrence: None)
  Receive Date: 20100809
  Receipt Date: 20100224
  Transmission Date: 20110219
  Serious: Yes (Disabling, Other)
  Sender: FDA-Public Use
  Company Number: US-ABBOTT-10P-163-0628739-00

PATIENT
  Sex: Male
  Weight: 74.91 kg

DRUGS (2)
  1. DEPAKOTE ER [Suspect]
     Indication: GRAND MAL CONVULSION
     Dosage: 1500MG DAILY
     Dates: start: 20070101
  2. TRILEPTAL [Concomitant]
     Indication: CONVULSION PROPHYLAXIS
     Dosage: 600MG DAILY

REACTIONS (2)
  - CONVULSION [None]
  - PETIT MAL EPILEPSY [None]
